FAERS Safety Report 4286243-9 (Version None)
Quarter: 2004Q1

REPORT INFORMATION
  Report Type: 
  Country: None (occurrence: None)
  Receive Date: 20040205
  Receipt Date: 20040205
  Transmission Date: 20041129
  Serious: Yes (Other)
  Sender: FDA-Public Use
  Company Number: None

PATIENT
  Age: 10 Year
  Sex: Male
  Weight: 27.2158 kg

DRUGS (2)
  1. LARIAM [Suspect]
     Indication: MALARIA PROPHYLAXIS
     Dosage: 1 TSP ONE TIME PER WK
     Dates: start: 20031215, end: 20031224
  2. METHLAQUINE TABS 250 MG - COMPOUNDED [Suspect]

REACTIONS (1)
  - GRAND MAL CONVULSION [None]
